FAERS Safety Report 21054381 (Version 2)
Quarter: 2022Q3

REPORT INFORMATION
  Report Type: Spontaneous
  Country: FR (occurrence: FR)
  Receive Date: 20220707
  Receipt Date: 20220712
  Transmission Date: 20221026
  Serious: No
  Sender: FDA-Public Use
  Company Number: FR-PFIZER INC-202200742059

PATIENT
  Age: 84 Year
  Sex: Male
  Weight: 68 kg

DRUGS (11)
  1. VYNDAQEL [Suspect]
     Active Substance: TAFAMIDIS MEGLUMINE
     Indication: Cardiac amyloidosis
     Dosage: 20 MG, DAILY
     Dates: start: 20200921
  2. VYNDAQEL [Suspect]
     Active Substance: TAFAMIDIS MEGLUMINE
     Dosage: 80 MG, DAILY
     Dates: start: 20210121
  3. BISOPROLOL [Concomitant]
     Active Substance: BISOPROLOL
     Dosage: 1.25 MG, DAILY
  4. SPIRONOLACTONE [Concomitant]
     Active Substance: SPIRONOLACTONE
     Dosage: 25 MG
  5. ELIQUIS [Concomitant]
     Active Substance: APIXABAN
     Dosage: 5 MG, 1X/DAY:1-0-0
  6. IRBESARTAN [Concomitant]
     Active Substance: IRBESARTAN
     Dosage: 300 MG, 1X/DAY
  7. IRBESARTAN [Concomitant]
     Active Substance: IRBESARTAN
     Dosage: 300 MG
  8. METFORMIN HYDROCHLORIDE [Concomitant]
     Active Substance: METFORMIN HYDROCHLORIDE
     Dosage: UNK
  9. FUROSEMIDE [Concomitant]
     Active Substance: FUROSEMIDE
     Dosage: 125 MG, 1X/DAY:1-0-0
  10. CORDARONE [Concomitant]
     Active Substance: AMIODARONE HYDROCHLORIDE
  11. FUROSEMIDE [Concomitant]
     Active Substance: FUROSEMIDE
     Dosage: 125 MG, DAILY

REACTIONS (3)
  - N-terminal prohormone brain natriuretic peptide increased [Unknown]
  - Troponin I increased [Unknown]
  - Off label use [Unknown]

NARRATIVE: CASE EVENT DATE: 20200921
